FAERS Safety Report 12381045 (Version 1)
Quarter: 2016Q2

REPORT INFORMATION
  Report Type: Report from Study
  Country: MY (occurrence: MY)
  Receive Date: 20160518
  Receipt Date: 20160518
  Transmission Date: 20160815
  Serious: Yes (Hospitalization)
  Sender: FDA-Public Use
  Company Number: MY-PFIZER INC-2016016358

PATIENT
  Age: 55 Year
  Sex: Female
  Weight: 51 kg

DRUGS (14)
  1. CARBOPLATIN. [Suspect]
     Active Substance: CARBOPLATIN
     Indication: LUNG NEOPLASM MALIGNANT
     Dosage: 641 MG, UNK
     Route: 042
     Dates: start: 20160105
  2. PIRITON [Concomitant]
     Active Substance: CHLORPHENIRAMINE MALEATE
     Indication: ALLERGY PROPHYLAXIS
     Dosage: 20 MG, SINGLE
     Route: 042
     Dates: start: 20160105, end: 20160105
  3. MAXOLON [Concomitant]
     Active Substance: METOCLOPRAMIDE HYDROCHLORIDE
     Indication: PROPHYLAXIS OF NAUSEA AND VOMITING
     Dosage: 10 MG, SINGLE
     Route: 042
     Dates: start: 20160105, end: 20160105
  4. PF-06439535 [Suspect]
     Active Substance: INVESTIGATIONAL PRODUCT
     Indication: LUNG NEOPLASM MALIGNANT
     Dosage: 764 MG, UNK
     Route: 042
     Dates: start: 20160105
  5. CARBOPLATIN. [Suspect]
     Active Substance: CARBOPLATIN
     Dosage: 293 UNK, UNK
     Route: 042
  6. DEXAMETHASONE. [Concomitant]
     Active Substance: DEXAMETHASONE
     Indication: ALLERGY PROPHYLAXIS
  7. MIDAZOLAM [Concomitant]
     Active Substance: MIDAZOLAM\MIDAZOLAM HYDROCHLORIDE
     Indication: INSOMNIA
     Dosage: 7.5 MG, 1X/DAY (AT NIGHT)
     Route: 048
     Dates: start: 20160105, end: 20160105
  8. DEXAMETHASONE. [Concomitant]
     Active Substance: DEXAMETHASONE
     Indication: PROPHYLAXIS OF NAUSEA AND VOMITING
     Dosage: 16 MG, SINGLE
     Route: 042
     Dates: start: 20160105, end: 20160105
  9. MAALOX ANTACID [Concomitant]
     Active Substance: ALUMINUM HYDROXIDE\DIMETHICONE\MAGNESIUM HYDROXIDE
     Indication: ABDOMINAL DISCOMFORT
     Dosage: 15 ML, SINGLE
     Route: 048
     Dates: start: 20160105, end: 20160105
  10. ITOPRIDE [Concomitant]
     Active Substance: ITOPRIDE
     Indication: ABDOMINAL DISCOMFORT
     Dosage: 50 MG, SINGLE
     Route: 048
     Dates: start: 20160105, end: 20160105
  11. GRANISETRON [Concomitant]
     Active Substance: GRANISETRON
     Indication: PROPHYLAXIS OF NAUSEA AND VOMITING
     Dosage: 3 MG, SINGLE
     Route: 042
     Dates: start: 20160105, end: 20160105
  12. RANITIDINE. [Concomitant]
     Active Substance: RANITIDINE
     Indication: ALLERGY PROPHYLAXIS
     Dosage: 50 MG, SINGLE
     Route: 042
     Dates: start: 20160105, end: 20160105
  13. PACLITAXEL. [Suspect]
     Active Substance: PACLITAXEL
     Indication: LUNG NEOPLASM MALIGNANT
     Dosage: 293 MG, UNK
     Route: 042
     Dates: start: 20160105
  14. PANTOPRAZOLE [Concomitant]
     Active Substance: PANTOPRAZOLE SODIUM
     Indication: GASTRITIS PROPHYLAXIS
     Dosage: 40 MG, SINGLE
     Route: 042
     Dates: start: 20160105, end: 20160105

REACTIONS (2)
  - Gastroenteritis [Recovered/Resolved]
  - Hyponatraemia [Recovered/Resolved]

NARRATIVE: CASE EVENT DATE: 20160109
